FAERS Safety Report 19789123 (Version 1)
Quarter: 2021Q3

REPORT INFORMATION
  Report Type: Spontaneous
  Country: GB (occurrence: GB)
  Receive Date: 20210904
  Receipt Date: 20210904
  Transmission Date: 20211014
  Serious: Yes (Other)
  Sender: FDA-Public Use
  Company Number: GB-ACCORD-237195

PATIENT
  Age: 32 Year
  Sex: Male
  Weight: 95.25 kg

DRUGS (2)
  1. PREDNISOLONE. [Suspect]
     Active Substance: PREDNISOLONE
     Indication: UVEITIS
     Dosage: 70MG PER DAY
     Route: 048
     Dates: start: 202003, end: 202105
  2. MYCOPHENOLIC ACID. [Suspect]
     Active Substance: MYCOPHENOLIC ACID
     Indication: UVEITIS
     Dosage: 2000MG PER DAY
     Route: 048
     Dates: start: 202009, end: 202105

REACTIONS (2)
  - Myopathy [Not Recovered/Not Resolved]
  - Off label use [Unknown]

NARRATIVE: CASE EVENT DATE: 202010
